FAERS Safety Report 9495737 (Version 2)
Quarter: 2013Q3

REPORT INFORMATION
  Report Type: Spontaneous
  Country: US (occurrence: US)
  Receive Date: 20130903
  Receipt Date: 20130909
  Transmission Date: 20140515
  Serious: Yes (Other)
  Sender: FDA-Public Use
  Company Number: US-ABBOTT-13P-163-1140333-00

PATIENT
  Sex: 0

DRUGS (4)
  1. DEPAKOTE ER [Suspect]
     Indication: PRODUCT USED FOR UNKNOWN INDICATION
     Dosage: 3000 MG DAILY
     Dates: start: 1983
  2. DEPAKOTE ER [Suspect]
     Dosage: 2000 MG DAILY
  3. ZONEGRAN [Suspect]
     Indication: PRODUCT USED FOR UNKNOWN INDICATION
  4. CYMBALTA [Concomitant]
     Indication: PRODUCT USED FOR UNKNOWN INDICATION

REACTIONS (14)
  - Convulsion [Unknown]
  - Tongue injury [Unknown]
  - Fatigue [Unknown]
  - Weight increased [Unknown]
  - Weight decreased [Unknown]
  - Alopecia [Unknown]
  - Tremor [Unknown]
  - Disturbance in attention [Unknown]
  - Memory impairment [Unknown]
  - Osteoporosis [Unknown]
  - Arthritis [Unknown]
  - Gastrointestinal disorder [Unknown]
  - Sleep disorder [Unknown]
  - Depression [Unknown]
